FAERS Safety Report 4474375-1 (Version None)
Quarter: 2004Q4

REPORT INFORMATION
  Report Type: 
  Country: None (occurrence: None)
  Receive Date: 20041012
  Receipt Date: 20040924
  Transmission Date: 20050328
  Serious: Yes (Life-Threatening, Hospitalization)
  Sender: FDA-Public Use
  Company Number: DE-2004-032789

PATIENT
  Age: 38 Year
  Sex: Male
  Weight: 90 kg

DRUGS (1)
  1. CAMPATH [Suspect]
     Indication: LIVER TRANSPLANT
     Dosage: 20 UNK, 1X/DAY, INTRAVENOUS
     Route: 042
     Dates: start: 20040226, end: 20040427

REACTIONS (4)
  - HEPATIC FAILURE [None]
  - LIVER TRANSPLANT [None]
  - SURGICAL PROCEDURE REPEATED [None]
  - TRANSPLANT FAILURE [None]
